FAERS Safety Report 12731549 (Version 1)
Quarter: 2016Q3

REPORT INFORMATION
  Report Type: Spontaneous
  Country: US (occurrence: US)
  Receive Date: 20160912
  Receipt Date: 20160912
  Transmission Date: 20161109
  Serious: No
  Sender: FDA-Public Use
  Company Number: US-TEVA-671001USA

PATIENT
  Sex: Female
  Weight: 55.39 kg

DRUGS (1)
  1. ENOXAPARIN [Suspect]
     Active Substance: ENOXAPARIN
     Indication: ANTICOAGULANT THERAPY
     Dosage: 60MG/0.6ML

REACTIONS (2)
  - Injection site pain [Unknown]
  - Product substitution issue [Unknown]
